FAERS Safety Report 17235266 (Version 1)
Quarter: 2020Q1

REPORT INFORMATION
  Report Type: Spontaneous
  Country: US (occurrence: US)
  Receive Date: 20200103
  Receipt Date: 20200103
  Transmission Date: 20200409
  Serious: No
  Sender: FDA-Public Use
  Company Number: None

PATIENT
  Age: 38 Year
  Sex: Female
  Weight: 84.6 kg

DRUGS (5)
  1. BUDESONIDE 3MG CAPSULES [Suspect]
     Active Substance: BUDESONIDE
     Indication: COLITIS ULCERATIVE
     Dosage: ?          QUANTITY:2 CAPSULE(S);?
     Route: 048
  2. OMEPERAZOLE [Concomitant]
     Active Substance: OMEPRAZOLE
  3. DILTIAZEM. [Concomitant]
     Active Substance: DILTIAZEM
  4. ALLEGRA [Concomitant]
     Active Substance: FEXOFENADINE HYDROCHLORIDE
  5. ISIBLOOM [Concomitant]
     Active Substance: DESOGESTREL\ETHINYL ESTRADIOL

REACTIONS (2)
  - Menorrhagia [None]
  - Polymenorrhoea [None]

NARRATIVE: CASE EVENT DATE: 20200101
